FAERS Safety Report 7586142-0 (Version None)
Quarter: 2011Q3

REPORT INFORMATION
  Report Type: 
  Country: None (occurrence: None)
  Receive Date: 20110701
  Receipt Date: 20110622
  Transmission Date: 20111222
  Serious: Yes (Death, Hospitalization)
  Sender: FDA-Public Use
  Company Number: JP-AMGEN-JPNCT2010011103

PATIENT
  Age: 72 Year
  Sex: Male
  Weight: 54 kg

DRUGS (12)
  1. MYSER [Concomitant]
     Route: 062
  2. FLUOROURACIL [Suspect]
     Route: 041
     Dates: start: 20101021
  3. LEUCOVORIN CALCIUM [Suspect]
     Indication: COLORECTAL CANCER
     Route: 041
     Dates: start: 20101021
  4. RINDERON-VG [Concomitant]
     Route: 062
  5. CORTICOSTEROIDS [Concomitant]
     Indication: PROPHYLAXIS
     Route: 065
  6. HIRUDOID [Concomitant]
     Route: 062
  7. ALMETA [Concomitant]
     Route: 062
  8. PANITUMUMAB [Suspect]
     Indication: COLORECTAL CANCER
     Dosage: 6 MG/KG, Q2WK
     Route: 041
     Dates: start: 20101021, end: 20101202
  9. ANTIHISTAMINES [Concomitant]
     Indication: PROPHYLAXIS
     Route: 065
  10. PANITUMUMAB [Suspect]
     Dosage: 1.8 MG/KG, Q2WK
     Route: 041
     Dates: start: 20101221
  11. OXALIPLATIN [Suspect]
     Indication: COLORECTAL CANCER
     Route: 041
     Dates: start: 20101021
  12. FLUOROURACIL [Suspect]
     Indication: COLORECTAL CANCER
     Route: 040
     Dates: start: 20101021

REACTIONS (5)
  - COLORECTAL CANCER [None]
  - DUODENAL ULCER [None]
  - PNEUMONITIS [None]
  - DERMATITIS ACNEIFORM [None]
  - STOMATITIS [None]
